FAERS Safety Report 8014532-0 (Version None)
Quarter: 2011Q4

REPORT INFORMATION
  Report Type: 
  Country: None (occurrence: None)
  Receive Date: 20111223
  Receipt Date: 20111212
  Transmission Date: 20120403
  Serious: Yes (Life-Threatening)
  Sender: FDA-Public Use
  Company Number: TCI2011A04630

PATIENT
  Age: 55 Year
  Sex: Male

DRUGS (7)
  1. GLYBURIDE [Concomitant]
  2. METFORMIN HCL [Concomitant]
  3. BASEN (VOGLIBOSE) [Concomitant]
  4. PRAVATIN (PRAVASTATIN SODIUM) [Concomitant]
  5. ACTOS [Suspect]
     Indication: DIABETES MELLITUS
     Dosage: 15 MG (15 MG, 1 IN 1 D)
     Route: 048
     Dates: start: 20071013, end: 20110820
  6. ALLOPURINOL [Concomitant]
  7. BEZATOL SR(BEZAFIBRATE) [Concomitant]

REACTIONS (2)
  - BLADDER TRANSITIONAL CELL CARCINOMA [None]
  - NEPHROLITHIASIS [None]
